FAERS Safety Report 8047509-X (Version None)
Quarter: 2012Q1

REPORT INFORMATION
  Report Type: 
  Country: None (occurrence: None)
  Receive Date: 20120116
  Receipt Date: 20120110
  Transmission Date: 20120608
  Serious: Yes (Death, Hospitalization, Other)
  Sender: FDA-Public Use
  Company Number: DE-ELI_LILLY_AND_COMPANY-DE201010003267

PATIENT
  Sex: Male
  Weight: 67 kg

DRUGS (8)
  1. GEMCITABINE HYDROCHLORIDE [Suspect]
     Indication: NON-SMALL CELL LUNG CANCER
     Dosage: 2290 MG, UNK
     Route: 042
     Dates: start: 20100921, end: 20100928
  2. CISPLATIN [Suspect]
     Indication: NON-SMALL CELL LUNG CANCER
     Dosage: 137 MG, UNK
     Route: 042
     Dates: start: 20100921, end: 20100921
  3. ENALAPRIL MALEATE [Concomitant]
     Indication: HYPERTENSION
  4. ACETYLSALICYLIC ACID SRT [Concomitant]
     Indication: PROPHYLAXIS
  5. HYDROCHLOROTHIAZIDE [Concomitant]
     Indication: HYPERTENSION
  6. ALLOPURINOL [Concomitant]
     Indication: HYPERURICAEMIA
  7. BISOPROLOL FUMARATE [Concomitant]
     Indication: HYPERTENSION
  8. SIMVASTATIN [Concomitant]

REACTIONS (5)
  - THROMBOCYTOPENIA [None]
  - URINARY RETENTION [None]
  - UROSEPSIS [None]
  - NEUTROPENIA [None]
  - FATIGUE [None]
